FAERS Safety Report 23623500 (Version 1)
Quarter: 2024Q1

REPORT INFORMATION
  Report Type: Spontaneous
  Country: FR (occurrence: FR)
  Receive Date: 20240312
  Receipt Date: 20240312
  Transmission Date: 20240410
  Serious: Yes (Other)
  Sender: FDA-Public Use
  Company Number: None

PATIENT
  Age: 45 Year
  Sex: Male

DRUGS (5)
  1. VINCRISTINE [Suspect]
     Active Substance: VINCRISTINE
     Indication: Cutaneous lymphoma
     Dosage: 2 MG, CYCLE 1
     Route: 042
     Dates: start: 20240115, end: 20240115
  2. PREDNISONE [Suspect]
     Active Substance: PREDNISONE
     Indication: Cutaneous lymphoma
     Dosage: 100 MG, 1X/DAY, CYCLE 1
     Route: 048
     Dates: start: 20240115, end: 20240119
  3. CYCLOPHOSPHAMIDE [Suspect]
     Active Substance: CYCLOPHOSPHAMIDE
     Indication: Cutaneous lymphoma
     Dosage: 1.29 G, CYCLE 1
     Route: 042
     Dates: start: 20240115, end: 20240115
  4. ETOPOSIDE [Suspect]
     Active Substance: ETOPOSIDE
     Indication: Cutaneous lymphoma
     Dosage: 172 MG, 1X/DAY, CYCLE 1
     Route: 042
     Dates: start: 20240115, end: 20240117
  5. DOXORUBICIN [Suspect]
     Active Substance: DOXORUBICIN
     Indication: Cutaneous lymphoma
     Dosage: 86 MG, CYCLE 1
     Route: 042
     Dates: start: 20240115, end: 20240115

REACTIONS (1)
  - Palmar-plantar erythrodysaesthesia syndrome [Recovering/Resolving]

NARRATIVE: CASE EVENT DATE: 20240202
